FAERS Safety Report 13379936 (Version 2)
Quarter: 2017Q4

REPORT INFORMATION
  Report Type: Spontaneous
  Country: US (occurrence: US)
  Receive Date: 20170328
  Receipt Date: 20171012
  Transmission Date: 20180320
  Serious: Yes (Other)
  Sender: FDA-Public Use
  Company Number: US-ELI_LILLY_AND_COMPANY-US201608001530

PATIENT
  Sex: Male

DRUGS (5)
  1. CYMBALTA [Suspect]
     Active Substance: DULOXETINE HYDROCHLORIDE
     Indication: PRODUCT USED FOR UNKNOWN INDICATION
     Dosage: 30 MG, UNKNOWN
     Route: 065
  2. CYMBALTA [Suspect]
     Active Substance: DULOXETINE HYDROCHLORIDE
     Dosage: UNK UNK, UNKNOWN
     Route: 048
  3. HYDROXYZINE [Concomitant]
     Active Substance: HYDROXYZINE HYDROCHLORIDE
     Dosage: 25 MG, UNK
  4. DULOXETINE HYDROCHLORIDE. [Suspect]
     Active Substance: DULOXETINE HYDROCHLORIDE
     Indication: PRODUCT USED FOR UNKNOWN INDICATION
     Dosage: UNK, UNKNOWN
     Route: 065
  5. DULOXETINE. [Suspect]
     Active Substance: DULOXETINE
     Indication: PRODUCT USED FOR UNKNOWN INDICATION
     Dosage: UNK, UNKNOWN
     Route: 065

REACTIONS (25)
  - Affect lability [Unknown]
  - Agitation [Unknown]
  - Dysphoria [Unknown]
  - Hyperhidrosis [Unknown]
  - Tinnitus [Unknown]
  - Drug withdrawal syndrome [Recovered/Resolved]
  - Headache [Unknown]
  - Suicidal ideation [Unknown]
  - Confusional state [Unknown]
  - Paraesthesia [Recovered/Resolved]
  - Hypomania [Unknown]
  - Vomiting [Unknown]
  - Insomnia [Unknown]
  - Urticaria [Recovered/Resolved]
  - Lethargy [Unknown]
  - Irritability [Unknown]
  - Mental disorder [Recovered/Resolved]
  - Drug dose omission [Unknown]
  - Vertigo [Unknown]
  - Fatigue [Unknown]
  - Dizziness [Unknown]
  - Sensory disturbance [Unknown]
  - Nausea [Unknown]
  - Diarrhoea [Unknown]
  - Anxiety [Unknown]
